APPROVED DRUG PRODUCT: POTASSIUM IODIDE
Active Ingredient: POTASSIUM IODIDE
Strength: 65MG/ML
Dosage Form/Route: SOLUTION;ORAL
Application: A206211 | Product #001
Applicant: MISSION PHARMACAL CO
Approved: Mar 24, 2016 | RLD: No | RS: Yes | Type: OTC